FAERS Safety Report 11117778 (Version 1)
Quarter: 2015Q2

REPORT INFORMATION
  Report Type: Report from Study
  Country: US (occurrence: US)
  Receive Date: 20150518
  Receipt Date: 20150518
  Transmission Date: 20150821
  Serious: Yes (Other)
  Sender: FDA-Public Use
  Company Number: US-AMGEN-USASL2015047592

PATIENT
  Age: 50 Year
  Sex: Female
  Weight: 57.78 kg

DRUGS (1)
  1. PROCRIT [Suspect]
     Active Substance: ERYTHROPOIETIN
     Indication: ANAEMIA
     Dosage: 40000, QWK FOR 6 MONTHS
     Route: 058

REACTIONS (10)
  - Metastases to lung [Unknown]
  - Metastases to bone marrow [Unknown]
  - Nausea [Unknown]
  - Metastases to liver [Unknown]
  - Device malfunction [Unknown]
  - Vomiting [Unknown]
  - Anaemia [Unknown]
  - Oesophageal carcinoma [Not Recovered/Not Resolved]
  - Metastases to bone [Unknown]
  - Abdominal pain [Unknown]

NARRATIVE: CASE EVENT DATE: 20150121
